FAERS Safety Report 7989208-6 (Version None)
Quarter: 2011Q4

REPORT INFORMATION
  Report Type: 
  Country: None (occurrence: None)
  Receive Date: 20111007
  Receipt Date: 20110720
  Transmission Date: 20120403
  Serious: No
  Sender: FDA-Public Use
  Company Number: 2011HGS-002413

PATIENT
  Age: 40 Year
  Sex: Male

DRUGS (2)
  1. BENLYSTA [Suspect]
     Indication: SYSTEMIC LUPUS ERYTHEMATOSUS
     Dosage: 10 MG/KG, INTRAVENOUS DRIP
     Route: 041
  2. STEROIDS (ANABOLIC STEROIDS) (STEROIDS) [Concomitant]

REACTIONS (2)
  - ORTHOSTATIC HYPOTENSION [None]
  - DIARRHOEA [None]
